FAERS Safety Report 20541138 (Version 1)
Quarter: 2022Q1

REPORT INFORMATION
  Report Type: Spontaneous
  Country: RU (occurrence: RU)
  Receive Date: 20220302
  Receipt Date: 20220302
  Transmission Date: 20220423
  Serious: Yes (Hospitalization, Other)
  Sender: FDA-Public Use
  Company Number: RU-JNJFOC-20211136537

PATIENT
  Age: 33 Year
  Sex: Male
  Weight: 72 kg

DRUGS (5)
  1. INVEGA [Suspect]
     Active Substance: PALIPERIDONE
     Indication: Psychotic disorder
     Route: 048
     Dates: start: 20200811, end: 20200901
  2. LATUDA [Suspect]
     Active Substance: LURASIDONE HYDROCHLORIDE
     Indication: Mental disorder
     Route: 048
     Dates: start: 20200715, end: 20200819
  3. PAROXETINE [Suspect]
     Active Substance: PAROXETINE
     Indication: Mental disorder
     Route: 048
     Dates: start: 20200626, end: 20200819
  4. VALPROATE SODIUM [Suspect]
     Active Substance: VALPROATE SODIUM
     Indication: Mental disorder
     Route: 048
     Dates: start: 20200720
  5. BRINTELLIX [Suspect]
     Active Substance: VORTIOXETINE HYDROBROMIDE
     Indication: Mental disorder
     Route: 048
     Dates: start: 20200812, end: 20200827

REACTIONS (4)
  - Hypertonia [Not Recovered/Not Resolved]
  - Tremor [Not Recovered/Not Resolved]
  - Libido decreased [Not Recovered/Not Resolved]
  - Salivary hypersecretion [Recovering/Resolving]

NARRATIVE: CASE EVENT DATE: 20200824
